FAERS Safety Report 6843874-7 (Version None)
Quarter: 2010Q3

REPORT INFORMATION
  Report Type: 
  Country: None (occurrence: None)
  Receive Date: 20100715
  Receipt Date: 20100712
  Transmission Date: 20110219
  Serious: Yes (Death, Other)
  Sender: FDA-Public Use
  Company Number: PHHY2010GB18923

PATIENT
  Sex: Female

DRUGS (4)
  1. CLOZARIL [Suspect]
     Indication: SCHIZOPHRENIA
     Dosage: UNK
     Dates: start: 19971203
  2. CLOZARIL [Suspect]
     Dosage: 200MG DAILY
     Route: 048
  3. PAROXETINE [Suspect]
     Indication: ANXIETY
     Dosage: 200MG DAILY
     Route: 048
  4. LEVOTHYROXINE SODIUM [Concomitant]
     Indication: HYPOTHYROIDISM
     Dosage: 100MCG DAILY
     Route: 048
     Dates: end: 20100305

REACTIONS (2)
  - DEATH [None]
  - NON-SMALL CELL LUNG CANCER [None]
